FAERS Safety Report 13460554 (Version 2)
Quarter: 2017Q3

REPORT INFORMATION
  Report Type: Spontaneous
  Country: US (occurrence: US)
  Receive Date: 20170420
  Receipt Date: 20170807
  Transmission Date: 20171127
  Serious: No
  Sender: FDA-Public Use
  Company Number: US-PFIZER INC-2017171014

PATIENT
  Age: 36 Year
  Sex: Female

DRUGS (3)
  1. NICKEL [Suspect]
     Active Substance: NICKEL
     Dosage: UNK
  2. MOBIC [Suspect]
     Active Substance: MELOXICAM
     Dosage: UNK
  3. GABAPENTIN. [Suspect]
     Active Substance: GABAPENTIN
     Dosage: UNK

REACTIONS (1)
  - Drug hypersensitivity [Unknown]
